FAERS Safety Report 9741119 (Version 1)
Quarter: 2013Q4

REPORT INFORMATION
  Report Type: Spontaneous
  Country: US (occurrence: US)
  Receive Date: 20131209
  Receipt Date: 20131209
  Transmission Date: 20140711
  Serious: No
  Sender: FDA-Public Use
  Company Number: US-GILEAD-2013-0089373

PATIENT
  Sex: Female

DRUGS (1)
  1. LETAIRIS [Suspect]
     Indication: PRODUCT USED FOR UNKNOWN INDICATION
     Dosage: 10 MG, UNK
     Route: 048
     Dates: start: 20131024

REACTIONS (9)
  - Hypoaesthesia [Unknown]
  - Decreased appetite [Unknown]
  - Dyspnoea [Unknown]
  - Oedema peripheral [Unknown]
  - Swelling face [Unknown]
  - Oedema peripheral [Unknown]
  - Eye swelling [Unknown]
  - Asthenia [Unknown]
  - Periorbital oedema [Unknown]
